FAERS Safety Report 6044673-9 (Version None)
Quarter: 2009Q1

REPORT INFORMATION
  Report Type: 
  Country: None (occurrence: None)
  Receive Date: 20090120
  Receipt Date: 20090108
  Transmission Date: 20090719
  Serious: Yes (Hospitalization)
  Sender: FDA-Public Use
  Company Number: FR-PFIZER INC-2009153589

PATIENT

DRUGS (2)
  1. XANAX [Suspect]
     Indication: ANXIETY
     Dosage: UNK
     Dates: start: 20081221, end: 20081224
  2. IBUPROFEN TABLETS [Concomitant]

REACTIONS (1)
  - PARANOIA [None]
